FAERS Safety Report 5237344-X (Version None)
Quarter: 2007Q1

REPORT INFORMATION
  Report Type: 
  Country: None (occurrence: None)
  Receive Date: 20070213
  Receipt Date: 20070130
  Transmission Date: 20070707
  Serious: Yes (Hospitalization, Other)
  Sender: FDA-Public Use
  Company Number: CA-ELI_LILLY_AND_COMPANY-CA200701006302

PATIENT
  Age: 11 Year
  Sex: Male

DRUGS (2)
  1. STRATTERA [Suspect]
     Dates: start: 20060701
  2. STRATTERA [Suspect]
     Dosage: 40 MG, UNK

REACTIONS (2)
  - HEPATIC ENZYME INCREASED [None]
  - MONONUCLEOSIS SYNDROME [None]
